FAERS Safety Report 13439012 (Version 1)
Quarter: 2017Q2

REPORT INFORMATION
  Report Type: Spontaneous
  Country: US (occurrence: US)
  Receive Date: 20170413
  Receipt Date: 20170413
  Transmission Date: 20170830
  Serious: No
  Sender: FDA-Public Use
  Company Number: US-ROCHE-1311323

PATIENT
  Age: 40 Year
  Sex: Female
  Weight: 95.34 kg

DRUGS (1)
  1. ORLISTAT [Suspect]
     Active Substance: ORLISTAT
     Indication: NON-ALCOHOLIC STEATOHEPATITIS
     Route: 048

REACTIONS (2)
  - Diarrhoea [Unknown]
  - Abdominal distension [Unknown]
